FAERS Safety Report 12423556 (Version 1)
Quarter: 2016Q2

REPORT INFORMATION
  Report Type: Spontaneous
  Country: US (occurrence: US)
  Receive Date: 20160601
  Receipt Date: 20160601
  Transmission Date: 20160815
  Serious: No
  Sender: FDA-Public Use
  Company Number: US-NOVEN PHARMACEUTICALS, INC.-US2015000727

PATIENT
  Age: 13 Year
  Sex: Male

DRUGS (2)
  1. NORDITROPIN [Concomitant]
     Active Substance: SOMATROPIN
     Dosage: 2.4 MG, 6 DAYS A WEEK
  2. DAYTRANA [Suspect]
     Active Substance: METHYLPHENIDATE
     Indication: DISTURBANCE IN ATTENTION
     Dosage: 10 MG, UNKNOWN
     Route: 062
     Dates: start: 20150706

REACTIONS (3)
  - Product quality issue [Unknown]
  - Off label use [Unknown]
  - Application site erythema [Unknown]

NARRATIVE: CASE EVENT DATE: 20150706
